FAERS Safety Report 4576619-4 (Version None)
Quarter: 2005Q1

REPORT INFORMATION
  Report Type: 
  Country: None (occurrence: None)
  Receive Date: 20050210
  Receipt Date: 20050128
  Transmission Date: 20050727
  Serious: Yes (Hospitalization, Other)
  Sender: FDA-Public Use
  Company Number: US-JNJFOC-20041002491

PATIENT
  Sex: Female
  Weight: 92.08 kg

DRUGS (14)
  1. REMICADE [Suspect]
     Route: 042
  2. REMICADE [Suspect]
     Indication: CROHN'S DISEASE
     Route: 042
  3. PREDNISONE TAB [Suspect]
     Indication: CROHN'S DISEASE
  4. CIPRO [Concomitant]
  5. KLOR-CON [Concomitant]
  6. PROZAC [Concomitant]
  7. PHENERGAN [Concomitant]
     Dosage: AS NECESSARY
  8. DEMEROL [Concomitant]
  9. MORPHINE [Concomitant]
  10. IBUPROFEN [Concomitant]
  11. FLEXERIL [Concomitant]
  12. OXYCOTIN [Concomitant]
  13. AMBIEN [Concomitant]
     Dosage: AT BEDTIME
  14. DILAUDID [Concomitant]

REACTIONS (24)
  - ACCOMMODATION DISORDER [None]
  - ADVERSE DRUG REACTION [None]
  - AMNESIA [None]
  - CANDIDIASIS [None]
  - CONFUSIONAL STATE [None]
  - COUGH [None]
  - CROHN'S DISEASE [None]
  - DRUG HYPERSENSITIVITY [None]
  - DYSPHAGIA [None]
  - FLUID RETENTION [None]
  - HAEMATOCRIT DECREASED [None]
  - HAEMOGLOBIN DECREASED [None]
  - HEADACHE [None]
  - MOVEMENT DISORDER [None]
  - NASAL SEPTUM DEVIATION [None]
  - NAUSEA [None]
  - NYSTAGMUS [None]
  - PAIN [None]
  - PHARYNGOLARYNGEAL PAIN [None]
  - SINUSITIS [None]
  - SKIN STRIAE [None]
  - TREMOR [None]
  - UPPER RESPIRATORY FUNGAL INFECTION [None]
  - VISUAL DISTURBANCE [None]
